FAERS Safety Report 6349420-9 (Version None)
Quarter: 2009Q3

REPORT INFORMATION
  Report Type: 
  Country: None (occurrence: None)
  Receive Date: 20090911
  Receipt Date: 20090831
  Transmission Date: 20100115
  Serious: Yes (Death)
  Sender: FDA-Public Use
  Company Number: PL-PFIZER INC-2009262264

PATIENT
  Age: 25 Year

DRUGS (2)
  1. ZELDOX [Suspect]
     Dosage: 40 MG, 2X/DAY
  2. OLANZAPINE [Concomitant]
     Dosage: 20 MG, 2X/DAY

REACTIONS (1)
  - MYOCARDIAL INFARCTION [None]
